FAERS Safety Report 14057465 (Version 3)
Quarter: 2017Q4

REPORT INFORMATION
  Report Type: Report from Study
  Country: GB (occurrence: GB)
  Receive Date: 20171006
  Receipt Date: 20171117
  Transmission Date: 20180321
  Serious: Yes (Hospitalization, Other)
  Sender: FDA-Public Use
  Company Number: GB-ALEXION PHARMACEUTICALS INC-A201709997

PATIENT
  Age: 55 Year
  Sex: Male

DRUGS (7)
  1. SOLIRIS [Suspect]
     Active Substance: ECULIZUMAB
     Dosage: 1200 MG, FORTNIGHTLY
     Route: 065
  2. SOLIRIS [Suspect]
     Active Substance: ECULIZUMAB
     Indication: HAEMOLYTIC URAEMIC SYNDROME
     Dosage: UNK, UNKNOWN
     Route: 065
     Dates: start: 20140406
  3. SOLIRIS [Suspect]
     Active Substance: ECULIZUMAB
     Dosage: 1200 MG, Q2W
     Route: 065
     Dates: start: 20150818
  4. ATORVASTATIN [Concomitant]
     Active Substance: ATORVASTATIN
     Indication: PRODUCT USED FOR UNKNOWN INDICATION
     Dosage: UNK, UNKNOWN
     Route: 065
  5. SOLIRIS [Suspect]
     Active Substance: ECULIZUMAB
     Dosage: 1200 MG, Q2W
     Route: 065
     Dates: start: 20150818
  6. SOLIRIS [Suspect]
     Active Substance: ECULIZUMAB
     Dosage: 1200 MG, Q2W
     Route: 065
  7. AMLODIPINE [Concomitant]
     Active Substance: AMLODIPINE BESYLATE
     Indication: HYPOTENSION
     Dosage: UNK, UNKNOWN
     Route: 065

REACTIONS (14)
  - Body temperature increased [Recovering/Resolving]
  - Amputation stump pain [Unknown]
  - Fatigue [Unknown]
  - Pyrexia [Unknown]
  - Post procedural haemorrhage [Unknown]
  - Phantom pain [Not Recovered/Not Resolved]
  - Postoperative wound infection [Not Recovered/Not Resolved]
  - Contusion [Not Recovered/Not Resolved]
  - Ischaemia [Unknown]
  - Sepsis [Unknown]
  - Poor quality sleep [Unknown]
  - Pain in extremity [Not Recovered/Not Resolved]
  - Procedural pain [Unknown]
  - Suture rupture [Unknown]

NARRATIVE: CASE EVENT DATE: 20170601
